FAERS Safety Report 16025736 (Version 1)
Quarter: 2019Q1

REPORT INFORMATION
  Report Type: Spontaneous
  Country: GB (occurrence: GB)
  Receive Date: 20190302
  Receipt Date: 20190302
  Transmission Date: 20190418
  Serious: Yes (Hospitalization)
  Sender: FDA-Public Use
  Company Number: GB-ACCORD-109940

PATIENT
  Age: 54 Year
  Sex: Male

DRUGS (16)
  1. BUMETANIDE. [Concomitant]
     Active Substance: BUMETANIDE
  2. BISOPROLOL [Concomitant]
     Active Substance: BISOPROLOL
  3. RANITIDINE. [Concomitant]
     Active Substance: RANITIDINE
  4. HYDRALAZINE [Concomitant]
     Active Substance: HYDRALAZINE HYDROCHLORIDE
  5. FULTIUM-D3 [Concomitant]
     Active Substance: CHOLECALCIFEROL
  6. GABAPEN [Concomitant]
     Active Substance: GABAPENTIN
  7. EPLERENONE. [Suspect]
     Active Substance: EPLERENONE
     Indication: PRODUCT USED FOR UNKNOWN INDICATION
  8. LEVOTHYROXINE. [Concomitant]
     Active Substance: LEVOTHYROXINE
  9. RAMIPRIL. [Suspect]
     Active Substance: RAMIPRIL
     Indication: PRODUCT USED FOR UNKNOWN INDICATION
  10. ENTRESTO [Suspect]
     Active Substance: SACUBITRIL\VALSARTAN
     Indication: PRODUCT USED FOR UNKNOWN INDICATION
     Route: 048
  11. ACETYLSALICYLIC ACID [Concomitant]
     Active Substance: ASPIRIN
     Dosage: ASPIRIN COATED
  12. CLOTRIMAZOLE. [Concomitant]
     Active Substance: CLOTRIMAZOLE
  13. FUROSEMIDE. [Concomitant]
     Active Substance: FUROSEMIDE
  14. ISOSORBIDE. [Concomitant]
     Active Substance: ISOSORBIDE
  15. DIGOXIN. [Concomitant]
     Active Substance: DIGOXIN
  16. AMIODARONE [Concomitant]
     Active Substance: AMIODARONE

REACTIONS (1)
  - Acute kidney injury [Recovered/Resolved]
